FAERS Safety Report 5351172-6 (Version None)
Quarter: 2007Q2

REPORT INFORMATION
  Report Type: 
  Country: None (occurrence: None)
  Receive Date: 20070608
  Receipt Date: 20070530
  Transmission Date: 20071010
  Serious: Yes (Other)
  Sender: FDA-Public Use
  Company Number: JP-PFIZER INC-2007038644

PATIENT
  Sex: Female

DRUGS (2)
  1. ZOLOFT [Suspect]
     Indication: DEPRESSION
     Route: 048
     Dates: start: 20070303, end: 20070422
  2. TEGRETOL [Suspect]
     Indication: IRRITABILITY
     Dates: start: 20070301, end: 20070328

REACTIONS (6)
  - AKATHISIA [None]
  - DEPRESSION [None]
  - INSOMNIA [None]
  - IRRITABILITY [None]
  - SUICIDAL IDEATION [None]
  - URTICARIA [None]
